FAERS Safety Report 9720067 (Version 1)
Quarter: 2013Q4

REPORT INFORMATION
  Report Type: Spontaneous
  Country: JP (occurrence: JP)
  Receive Date: 20131128
  Receipt Date: 20131128
  Transmission Date: 20140711
  Serious: Yes (Life-Threatening, Hospitalization, Other)
  Sender: FDA-Public Use
  Company Number: JP-ASTRAZENECA-2013SE87081

PATIENT
  Age: 16 Year
  Sex: Female

DRUGS (6)
  1. SEROQUEL [Suspect]
     Indication: SUICIDE ATTEMPT
     Dosage: 1900 MG (76 TABLETS OF 25 MG TABLET)
     Route: 048
     Dates: start: 20131115, end: 20131115
  2. PSYCHOTROPIC AGENTS [Concomitant]
     Dosage: 35 TABLETS AND ANOTHER 35 TABLETS
     Dates: start: 20131115, end: 20131115
  3. ANTIDEPRESSANTS [Concomitant]
     Dosage: 56 MG (112 TABLETS OF 0.5 MG TABLET)
     Dates: start: 20131115, end: 20131115
  4. HYPNOTICS AND SEDATIVES [Concomitant]
     Dates: start: 20131115, end: 20131115
  5. ANTIANXIETICS [Concomitant]
     Dosage: 3.5 MG (14 TABLETS OF 0.25 MG TABLET)
     Dates: start: 20131115, end: 20131115
  6. AGENTS AFFECTING CENTRAL NERVOUS SYSTEM [Concomitant]
     Dosage: 35 TABLETS
     Dates: start: 20131115, end: 20131115

REACTIONS (3)
  - Intentional overdose [Unknown]
  - Suicide attempt [Unknown]
  - Coma [Unknown]
